FAERS Safety Report 5489518-0 (Version None)
Quarter: 2007Q4

REPORT INFORMATION
  Report Type: 
  Country: None (occurrence: None)
  Receive Date: 20071009
  Receipt Date: 20060824
  Transmission Date: 20080405
  Serious: Yes (Other)
  Sender: FDA-Public Use
  Company Number: US-JNJFOC-20060805813

PATIENT
  Age: 25 Year
  Sex: Female
  Weight: 61.2356 kg

DRUGS (1)
  1. ORTHO-NOVUM 7/7/7-21 [Suspect]
     Indication: CONTRACEPTION
     Dates: start: 20040101, end: 20060801

REACTIONS (3)
  - DRUG EXPOSURE DURING PREGNANCY [None]
  - PHARYNGOLARYNGEAL PAIN [None]
  - PREGNANCY ON ORAL CONTRACEPTIVE [None]
